FAERS Safety Report 4961428-4 (Version None)
Quarter: 2006Q1

REPORT INFORMATION
  Report Type: 
  Country: None (occurrence: None)
  Receive Date: 20060329
  Receipt Date: 20060320
  Transmission Date: 20060701
  Serious: Yes (Death)
  Sender: FDA-Public Use
  Company Number: GXKR2006GB01697

PATIENT
  Age: 38 Year
  Sex: Female

DRUGS (3)
  1. SANDO K (POTASSIUM BICARBONATE/POTASSIUM CHLORIDE) [Suspect]
     Indication: BLOOD POTASSIUM DECREASED
     Dosage: 2, BID; ORAL
     Route: 048
     Dates: start: 20050628
  2. FLUOXETINE [Suspect]
     Indication: DEPRESSION
     Dates: start: 20050522, end: 20050101
  3. CITALOPRAM HYDROBROMIDE [Suspect]
     Indication: DEPRESSION
     Dosage: 40 MG, QD; ORAL
     Route: 048
     Dates: start: 20050413

REACTIONS (12)
  - ANAEMIA [None]
  - BLOOD POTASSIUM DECREASED [None]
  - CARDIAC ARREST [None]
  - DRUG TOXICITY [None]
  - GASTRIC HAEMORRHAGE [None]
  - GASTRITIS [None]
  - HEPATIC FUNCTION ABNORMAL [None]
  - HEPATIC STEATOSIS [None]
  - HYPERKALAEMIA [None]
  - NAUSEA [None]
  - OVERDOSE [None]
  - VOMITING [None]
